FAERS Safety Report 13035576 (Version 1)
Quarter: 2016Q4

REPORT INFORMATION
  Report Type: Spontaneous
  Country: US (occurrence: US)
  Receive Date: 20161216
  Receipt Date: 20161216
  Transmission Date: 20170207
  Serious: Yes (Hospitalization)
  Sender: FDA-Public Use
  Company Number: US-SA-2016SA229005

PATIENT
  Age: 59 Year
  Sex: Female

DRUGS (2)
  1. PRALUENT [Suspect]
     Active Substance: ALIROCUMAB
     Route: 058
     Dates: start: 20160928
  2. ALIROCUMAB PREFILLED PEN [Concomitant]
     Active Substance: ALIROCUMAB
     Dates: start: 20160928

REACTIONS (5)
  - Bile duct obstruction [Unknown]
  - Bile duct stone [Unknown]
  - Cholelithiasis [Unknown]
  - Pain [Unknown]
  - Hepatic enzyme increased [Unknown]

NARRATIVE: CASE EVENT DATE: 20161207
